FAERS Safety Report 8407128-X (Version None)
Quarter: 2012Q2

REPORT INFORMATION
  Report Type: 
  Country: None (occurrence: None)
  Receive Date: 20120604
  Receipt Date: 20120511
  Transmission Date: 20120825
  Serious: No
  Sender: FDA-Public Use
  Company Number: US-BAYER-2012-049834

PATIENT

DRUGS (2)
  1. ALEVE (CAPLET) [Suspect]
     Indication: HEADACHE
     Dosage: 4 DF, ONCE
     Route: 048
  2. IBUPROFEN [Concomitant]
     Dosage: 4 DF, ONCE

REACTIONS (1)
  - NO ADVERSE EVENT [None]
